FAERS Safety Report 4495739-6 (Version None)
Quarter: 2004Q4

REPORT INFORMATION
  Report Type: 
  Country: None (occurrence: None)
  Receive Date: 20041108
  Receipt Date: 20041102
  Transmission Date: 20050328
  Serious: Yes (Life-Threatening, Hospitalization, Disabling)
  Sender: FDA-Public Use
  Company Number: US-MERCK-0411USA00416

PATIENT
  Age: 60 Year
  Sex: Female

DRUGS (6)
  1. VIOXX [Suspect]
     Indication: ARTHRITIS
     Route: 048
     Dates: start: 19990101, end: 20040101
  2. HYDRODIURIL [Concomitant]
     Route: 048
  3. PRINIVIL [Concomitant]
     Route: 048
  4. ZOCOR [Concomitant]
     Route: 048
  5. PLAVIX [Concomitant]
     Route: 065
  6. ELAVIL [Concomitant]
     Route: 065

REACTIONS (1)
  - CEREBROVASCULAR ACCIDENT [None]
